FAERS Safety Report 8428833-5 (Version None)
Quarter: 2012Q2

REPORT INFORMATION
  Report Type: 
  Country: None (occurrence: None)
  Receive Date: 20120612
  Receipt Date: 20120605
  Transmission Date: 20120825
  Serious: No
  Sender: FDA-Public Use
  Company Number: US-BAYER-2012-054927

PATIENT
  Age: 31 Year
  Sex: Female

DRUGS (1)
  1. MIRENA [Suspect]
     Indication: CONTRACEPTION
     Dosage: UNK
     Route: 015
     Dates: start: 20120329, end: 20120521

REACTIONS (4)
  - PAIN [None]
  - POST PROCEDURAL DISCOMFORT [None]
  - DYSPAREUNIA [None]
  - PROCEDURAL PAIN [None]
